FAERS Safety Report 25470539 (Version 1)
Quarter: 2025Q2

REPORT INFORMATION
  Report Type: Spontaneous
  Country: US (occurrence: US)
  Receive Date: 20250624
  Receipt Date: 20250624
  Transmission Date: 20250716
  Serious: No
  Sender: ZYDUS PHARM
  Company Number: US-CADILA HEALTHCARE LIMITED-US-ZYDUS-124731

PATIENT

DRUGS (1)
  1. LURASIDONE HYDROCHLORIDE [Suspect]
     Active Substance: LURASIDONE HYDROCHLORIDE
     Indication: Product used for unknown indication
     Route: 048

REACTIONS (1)
  - Muscle spasms [Not Recovered/Not Resolved]

NARRATIVE: CASE EVENT DATE: 20250101
